FAERS Safety Report 9702367 (Version 1)
Quarter: 2013Q4

REPORT INFORMATION
  Report Type: Spontaneous
  Country: PE (occurrence: PE)
  Receive Date: 20131121
  Receipt Date: 20131121
  Transmission Date: 20140711
  Serious: Yes (Hospitalization)
  Sender: FDA-Public Use
  Company Number: PE-PFIZER INC-2013332585

PATIENT
  Age: 74 Year
  Sex: Female

DRUGS (1)
  1. XANAX [Suspect]
     Dosage: 0.5 MG, UNK
     Route: 048

REACTIONS (1)
  - Asthma [Unknown]
